FAERS Safety Report 12795246 (Version 9)
Quarter: 2018Q3

REPORT INFORMATION
  Report Type: Spontaneous
  Country: US (occurrence: US)
  Receive Date: 20160929
  Receipt Date: 20180726
  Transmission Date: 20181010
  Serious: No
  Sender: FDA-Public Use
  Company Number: US-PFIZER INC-2016447059

PATIENT
  Age: 73 Year
  Sex: Female

DRUGS (1)
  1. BOSULIF [Suspect]
     Active Substance: BOSUTINIB MONOHYDRATE
     Indication: CHRONIC MYELOID LEUKAEMIA
     Dosage: 200 MG, DAILY (100 MG, 2 CAPS, ONCE DAILY(QD))
     Route: 048
     Dates: start: 20140801

REACTIONS (12)
  - Pain [Not Recovered/Not Resolved]
  - Dry skin [Not Recovered/Not Resolved]
  - Hypertension [Unknown]
  - Weight decreased [Unknown]
  - Epistaxis [Unknown]
  - Rash [Not Recovered/Not Resolved]
  - Fatigue [Not Recovered/Not Resolved]
  - Melanocytic naevus [Unknown]
  - Pain of skin [Unknown]
  - Skin wrinkling [Not Recovered/Not Resolved]
  - Expired product administered [Unknown]
  - Alopecia [Not Recovered/Not Resolved]

NARRATIVE: CASE EVENT DATE: 2014
